FAERS Safety Report 8791359 (Version 1)
Quarter: 2012Q4

REPORT INFORMATION
  Report Type: Spontaneous
  Country: BR (occurrence: None)
  Receive Date: 20120912
  Receipt Date: 20120912
  Transmission Date: 20130627
  Serious: Yes (Other)
  Sender: FDA-Public Use
  Company Number: FK201202576

PATIENT
  Age: 18 Year
  Sex: Female

DRUGS (3)
  1. VALPROATE SODIUM [Suspect]
     Indication: EPILEPSY
  2. VALPROATE SODIUM [Suspect]
     Indication: EPILEPSY
  3. LAMOTRIGINE (LAMOTRIGINE) [Suspect]
     Indication: EPILEPSY

REACTIONS (2)
  - Tic [None]
  - Tremor [None]
